FAERS Safety Report 9939730 (Version 1)
Quarter: 2014Q1

REPORT INFORMATION
  Report Type: Report from Study
  Country: US (occurrence: US)
  Receive Date: 20140303
  Receipt Date: 20140303
  Transmission Date: 20141002
  Serious: No
  Sender: FDA-Public Use
  Company Number: US-ABBVIE-13P-163-1037880-00

PATIENT
  Age: 44 Year
  Sex: Male

DRUGS (1)
  1. HUMIRA [Suspect]
     Indication: PSORIATIC ARTHROPATHY

REACTIONS (5)
  - Musculoskeletal chest pain [Unknown]
  - Injection site erythema [Not Recovered/Not Resolved]
  - Papule [Not Recovered/Not Resolved]
  - Myalgia [Unknown]
  - Feeling abnormal [Unknown]
